FAERS Safety Report 5464777-9 (Version None)
Quarter: 2007Q3

REPORT INFORMATION
  Report Type: 
  Country: None (occurrence: None)
  Receive Date: 20070820
  Receipt Date: 20070713
  Transmission Date: 20080115
  Serious: No
  Sender: FDA-Public Use
  Company Number: TPA2007A01507

PATIENT
  Age: 28 Year
  Sex: Female
  Weight: 77.1115 kg

DRUGS (3)
  1. ROZEREM [Suspect]
     Indication: INSOMNIA
     Dosage: 8 MG, AS REQUIRED, PER ORAL
     Route: 048
     Dates: start: 20070327, end: 20070501
  2. AMBIEN CR [Concomitant]
  3. LUNESTA [Concomitant]

REACTIONS (2)
  - DRUG INEFFECTIVE [None]
  - INITIAL INSOMNIA [None]
